FAERS Safety Report 15290462 (Version 2)
Quarter: 2019Q1

REPORT INFORMATION
  Report Type: Spontaneous
  Country: US (occurrence: US)
  Receive Date: 20180817
  Receipt Date: 20190125
  Transmission Date: 20190417
  Serious: Yes (Other)
  Sender: FDA-Public Use
  Company Number: US-ASTRAZENECA-2018SF02449

PATIENT
  Age: 18533 Day
  Sex: Female
  Weight: 115.7 kg

DRUGS (72)
  1. PROTONIX [Suspect]
     Active Substance: PANTOPRAZOLE SODIUM
     Route: 065
     Dates: start: 2004, end: 2017
  2. PROTONIX [Suspect]
     Active Substance: PANTOPRAZOLE SODIUM
     Dosage: GENERIC
     Route: 065
  3. ADVAIR DISKUS [Concomitant]
     Active Substance: FLUTICASONE PROPIONATE\SALMETEROL XINAFOATE
     Indication: CHRONIC OBSTRUCTIVE PULMONARY DISEASE
     Dates: start: 2007, end: 2010
  4. TYLENOL [Concomitant]
     Active Substance: ACETAMINOPHEN
     Dates: start: 2004, end: 2017
  5. ZOCOR [Concomitant]
     Active Substance: SIMVASTATIN
     Dates: start: 2006, end: 2007
  6. PROPOXYPHEN [Concomitant]
     Indication: ANALGESIC THERAPY
     Dates: start: 2004, end: 2010
  7. NALOXONE [Concomitant]
     Active Substance: NALOXONE
  8. METOLAZONE. [Concomitant]
     Active Substance: METOLAZONE
     Indication: BLOOD PRESSURE INCREASED
     Dates: start: 2008
  9. METFORMIN [Concomitant]
     Active Substance: METFORMIN HYDROCHLORIDE
     Indication: DIABETES MELLITUS
     Route: 048
     Dates: start: 20140414
  10. LEVOFLOXACIN. [Concomitant]
     Active Substance: LEVOFLOXACIN
     Indication: INFECTION
     Dates: start: 2014
  11. LISINOPRIL. [Concomitant]
     Active Substance: LISINOPRIL
     Dosage: 10.0MG UNKNOWN
     Dates: end: 2016
  12. METOCLOPRAMIDE. [Concomitant]
     Active Substance: METOCLOPRAMIDE
     Dates: start: 2008, end: 2009
  13. GENTAMICIN. [Concomitant]
     Active Substance: GENTAMICIN
     Dates: start: 2009
  14. GABAPENTIN. [Concomitant]
     Active Substance: GABAPENTIN
     Dates: start: 2007, end: 2017
  15. FLUCONAZOLE. [Concomitant]
     Active Substance: FLUCONAZOLE
     Dates: start: 2004, end: 2017
  16. ZITHROMAX [Concomitant]
     Active Substance: AZITHROMYCIN DIHYDRATE
     Indication: HYPERLIPIDAEMIA
     Dates: start: 2004
  17. PREDNISONE. [Concomitant]
     Active Substance: PREDNISONE
     Dates: start: 2007, end: 2017
  18. POLYETHYLENE GLYCOL [Concomitant]
     Active Substance: POLYETHYLENE GLYCOLS
     Indication: CONSTIPATION
     Dates: start: 2015, end: 2016
  19. MELOXICAM. [Concomitant]
     Active Substance: MELOXICAM
     Indication: OSTEOARTHRITIS
     Dates: start: 2017
  20. GABAPENTIN. [Concomitant]
     Active Substance: GABAPENTIN
  21. PREVACID [Suspect]
     Active Substance: LANSOPRAZOLE
     Indication: GASTROOESOPHAGEAL REFLUX DISEASE
     Route: 065
     Dates: start: 2004
  22. ATORVASTATIN [Concomitant]
     Active Substance: ATORVASTATIN
     Indication: HYPERLIPIDAEMIA
     Dates: start: 2014
  23. ALLOPURINOL. [Concomitant]
     Active Substance: ALLOPURINOL
     Indication: GOUT
     Dates: start: 2017
  24. ZETIA [Concomitant]
     Active Substance: EZETIMIBE
     Dates: start: 2007, end: 2008
  25. SYMBICORT [Concomitant]
     Active Substance: BUDESONIDE\FORMOTEROL FUMARATE DIHYDRATE
     Dates: start: 2004
  26. METOCLOPRAMIDE. [Concomitant]
     Active Substance: METOCLOPRAMIDE
     Dates: start: 2008, end: 2009
  27. GENTAMICIN. [Concomitant]
     Active Substance: GENTAMICIN
     Dates: start: 2017
  28. CYCLOBENZAPRINE. [Concomitant]
     Active Substance: CYCLOBENZAPRINE
     Indication: MUSCLE RELAXANT THERAPY
     Dates: start: 2007, end: 2015
  29. ALBUTEROL. [Concomitant]
     Active Substance: ALBUTEROL
     Dates: start: 2004, end: 2017
  30. AZITHROMYCIN ANHYDROUS. [Concomitant]
     Active Substance: AZITHROMYCIN ANHYDROUS
     Dates: start: 2007, end: 2017
  31. BENICAR [Concomitant]
     Active Substance: OLMESARTAN MEDOXOMIL
     Indication: HYPERTENSION
     Dates: start: 2007
  32. BENZONATATE. [Concomitant]
     Active Substance: BENZONATATE
     Indication: ASTHMA
     Dates: start: 2008, end: 2010
  33. RESTASIS [Concomitant]
     Active Substance: CYCLOSPORINE
     Dates: start: 2008, end: 2009
  34. PROMETHAZINE [Concomitant]
     Active Substance: PROMETHAZINE\PROMETHAZINE HYDROCHLORIDE
     Route: 048
     Dates: start: 2009, end: 2017
  35. NITROFURANTOIN. [Concomitant]
     Active Substance: NITROFURANTOIN
     Dates: start: 2017
  36. CLOTRIMAZOLE. [Concomitant]
     Active Substance: CLOTRIMAZOLE
     Indication: FUNGAL INFECTION
     Dates: start: 2014
  37. ALLOPURINOL. [Concomitant]
     Active Substance: ALLOPURINOL
     Indication: GOUT
     Route: 048
     Dates: start: 20140721
  38. IBUPROFEN. [Concomitant]
     Active Substance: IBUPROFEN
     Dates: start: 2004, end: 2017
  39. XOPENEX HFA [Concomitant]
     Active Substance: LEVALBUTEROL TARTRATE
     Dates: start: 2007, end: 2008
  40. SULFAMETHOXAZOLE [Concomitant]
     Active Substance: SULFAMETHOXAZOLE
     Dates: start: 2008, end: 2017
  41. PREDNISONE. [Concomitant]
     Active Substance: PREDNISONE
  42. NITROGLYCERIN. [Concomitant]
     Active Substance: NITROGLYCERIN
     Dates: start: 2010
  43. LISINOPRIL. [Concomitant]
     Active Substance: LISINOPRIL
     Dates: start: 2007, end: 2016
  44. LOTEMAX [Concomitant]
     Active Substance: LOTEPREDNOL ETABONATE
     Dates: start: 2008
  45. ACIPHEX [Suspect]
     Active Substance: RABEPRAZOLE SODIUM
     Indication: GASTROOESOPHAGEAL REFLUX DISEASE
     Route: 065
     Dates: start: 2006, end: 2008
  46. ATORVASTATIN [Concomitant]
     Active Substance: ATORVASTATIN
     Indication: HYPERLIPIDAEMIA
     Dates: start: 20170731
  47. RANITIDINE. [Concomitant]
     Active Substance: RANITIDINE
     Indication: GASTROOESOPHAGEAL REFLUX DISEASE
     Dates: start: 2008, end: 2009
  48. PROMETHAZINE [Concomitant]
     Active Substance: PROMETHAZINE\PROMETHAZINE HYDROCHLORIDE
     Route: 048
  49. PENTAZOCINE [Concomitant]
     Active Substance: PENTAZOCINE
     Indication: CHRONIC OBSTRUCTIVE PULMONARY DISEASE
     Dates: start: 2008
  50. OMNICEF [Concomitant]
     Active Substance: CEFDINIR
     Dates: start: 2007
  51. NAPROXEN. [Concomitant]
     Active Substance: NAPROXEN
     Dates: start: 2007, end: 2017
  52. LEVAQUIN [Concomitant]
     Active Substance: LEVOFLOXACIN
     Dates: start: 2004, end: 2010
  53. CLARITHROMYCIN. [Concomitant]
     Active Substance: CLARITHROMYCIN
     Dates: start: 2006, end: 2017
  54. NEXIUM [Suspect]
     Active Substance: ESOMEPRAZOLE MAGNESIUM
     Indication: GASTROOESOPHAGEAL REFLUX DISEASE
     Route: 048
     Dates: start: 2004, end: 2017
  55. ACETAMINOPHEN. [Concomitant]
     Active Substance: ACETAMINOPHEN
     Indication: ANALGESIC THERAPY
     Dates: start: 2015, end: 2018
  56. ULTRACET [Concomitant]
     Active Substance: ACETAMINOPHEN\TRAMADOL HYDROCHLORIDE
     Dates: start: 2004
  57. SUCRALFATE. [Concomitant]
     Active Substance: SUCRALFATE
     Dates: start: 2013, end: 2015
  58. MECLIZINE [Concomitant]
     Active Substance: MECLIZINE HYDROCHLORIDE
     Dates: start: 2008
  59. NEXIUM [Suspect]
     Active Substance: ESOMEPRAZOLE MAGNESIUM
     Indication: GASTROOESOPHAGEAL REFLUX DISEASE
     Route: 048
     Dates: start: 2008, end: 2014
  60. OMEPRAZOLE. [Suspect]
     Active Substance: OMEPRAZOLE
     Indication: GASTROOESOPHAGEAL REFLUX DISEASE
     Dosage: GENERIC
     Route: 065
     Dates: start: 2017
  61. PROTONIX [Suspect]
     Active Substance: PANTOPRAZOLE SODIUM
     Route: 065
     Dates: start: 2008, end: 2010
  62. ACTOS [Concomitant]
     Active Substance: PIOGLITAZONE HYDROCHLORIDE
     Indication: DIABETES MELLITUS
     Dates: start: 2006, end: 2007
  63. ALAVERT ALLERGY [Concomitant]
     Active Substance: LORATADINE
     Indication: MULTIPLE ALLERGIES
     Dates: start: 2007, end: 2008
  64. VYTORIN [Concomitant]
     Active Substance: EZETIMIBE\SIMVASTATIN
     Dates: start: 2000, end: 2012
  65. VYTORIN [Concomitant]
     Active Substance: EZETIMIBE\SIMVASTATIN
     Dosage: 10.0MG UNKNOWN
  66. TRAMADOL. [Concomitant]
     Active Substance: TRAMADOL
     Dates: start: 2004
  67. ONDANSETRON [Concomitant]
     Active Substance: ONDANSETRON
     Indication: NAUSEA
     Dates: start: 2013
  68. NASONEX [Concomitant]
     Active Substance: MOMETASONE FUROATE
     Dates: start: 2007, end: 2017
  69. METFORMIN [Concomitant]
     Active Substance: METFORMIN HYDROCHLORIDE
     Indication: DIABETES MELLITUS
     Dates: start: 2004, end: 2016
  70. FUROSEMIDE. [Concomitant]
     Active Substance: FUROSEMIDE
     Indication: FLUID RETENTION
     Dates: start: 2007
  71. DOXYCYCLINE. [Concomitant]
     Active Substance: DOXYCYCLINE
     Dates: start: 2007, end: 2018
  72. HYDROCODONE [Concomitant]
     Active Substance: HYDROCODONE
     Dates: start: 2011, end: 2015

REACTIONS (3)
  - Renal failure [Unknown]
  - Chronic kidney disease [Not Recovered/Not Resolved]
  - Acute kidney injury [Not Recovered/Not Resolved]

NARRATIVE: CASE EVENT DATE: 20080926
